FAERS Safety Report 15615885 (Version 2)
Quarter: 2018Q4

REPORT INFORMATION
  Report Type: Spontaneous
  Country: US (occurrence: US)
  Receive Date: 20181114
  Receipt Date: 20181114
  Transmission Date: 20190205
  Serious: Yes (Hospitalization, Other)
  Sender: FDA-Public Use
  Company Number: US-SHIRE-US201843556

PATIENT
  Age: 27 Year
  Sex: Male

DRUGS (5)
  1. FEIBA NF [Suspect]
     Active Substance: ANTI-INHIBITOR COAGULANT COMPLEX
     Indication: POST PROCEDURAL HAEMORRHAGE
     Dosage: 5000 IU, 4X/DAY:QID EVERY 6 HOURS
     Route: 058
     Dates: start: 20180912
  2. NOVOSEVEN [Concomitant]
     Active Substance: COAGULATION FACTOR VIIA RECOMBINANT HUMAN
     Indication: METRORRHAGIA
  3. FEIBA NF [Suspect]
     Active Substance: ANTI-INHIBITOR COAGULANT COMPLEX
     Indication: HIP SURGERY
     Dosage: 8 DF, UNK
     Route: 065
     Dates: start: 20180914
  4. FACTOR VII [Concomitant]
     Active Substance: COAGULATION FACTOR VII HUMAN
     Indication: PRODUCT USED FOR UNKNOWN INDICATION
  5. EMICIZUMAB. [Concomitant]
     Active Substance: EMICIZUMAB
     Indication: FACTOR VIII DEFICIENCY

REACTIONS (6)
  - Urethral abscess [Recovering/Resolving]
  - Postoperative ileus [Recovered/Resolved]
  - Thrombotic microangiopathy [Recovered/Resolved]
  - Priapism [Recovered/Resolved]
  - Haemolytic anaemia [Unknown]
  - Necrosis [Recovering/Resolving]

NARRATIVE: CASE EVENT DATE: 20180914
